FAERS Safety Report 9265882 (Version 2)
Quarter: 2013Q4

REPORT INFORMATION
  Report Type: Spontaneous
  Country: US (occurrence: US)
  Receive Date: 20130501
  Receipt Date: 20131108
  Transmission Date: 20140711
  Serious: No
  Sender: FDA-Public Use
  Company Number: US-B.I. PHARMACEUTICALS,INC./RIDGEFIELD-2013-BI-11232BP

PATIENT
  Age: 84 Year
  Sex: Female
  Weight: 52 kg

DRUGS (6)
  1. PRADAXA [Suspect]
     Indication: CEREBROVASCULAR ACCIDENT PROPHYLAXIS
     Dosage: 300 MG
     Route: 048
     Dates: start: 20110906, end: 20131020
  2. PRADAXA [Suspect]
     Indication: ATRIAL FIBRILLATION
  3. METOPROLOL [Concomitant]
     Indication: HYPERTENSION
     Dosage: 150 MG
     Route: 048
  4. LISINOPRIL [Concomitant]
     Dosage: 5 MG
     Route: 048
  5. DIGOXIN [Concomitant]
     Dosage: 0.125 MG
     Route: 048
  6. HYDROCODONE [Concomitant]
     Dosage: DOSE PER APPLICATION: 7.5 MG/ 500 MG
     Route: 048

REACTIONS (10)
  - Epistaxis [Not Recovered/Not Resolved]
  - Haemoptysis [Not Recovered/Not Resolved]
  - Contusion [Not Recovered/Not Resolved]
  - Contusion [Not Recovered/Not Resolved]
  - Local swelling [Not Recovered/Not Resolved]
  - Local swelling [Not Recovered/Not Resolved]
  - Intestinal haemorrhage [Not Recovered/Not Resolved]
  - Fall [Recovered/Resolved]
  - Haematoma [Not Recovered/Not Resolved]
  - Contusion [Not Recovered/Not Resolved]
